FAERS Safety Report 13493780 (Version 1)
Quarter: 2017Q2

REPORT INFORMATION
  Report Type: Spontaneous
  Country: US (occurrence: US)
  Receive Date: 20170427
  Receipt Date: 20170427
  Transmission Date: 20170830
  Serious: No
  Sender: FDA-Public Use
  Company Number: US-GUERBET-US-20160126

PATIENT
  Age: 43 Year
  Sex: Female
  Weight: 54.4 kg

DRUGS (3)
  1. DOTAREM [Suspect]
     Active Substance: GADOTERATE MEGLUMINE
     Indication: ARTHROGRAM
     Route: 014
     Dates: start: 20161019, end: 20161019
  2. SALINE [Concomitant]
     Active Substance: SODIUM CHLORIDE
     Indication: ARTHROGRAM
     Route: 065
     Dates: start: 20161019, end: 20161019
  3. OMNIPAQUE [Concomitant]
     Active Substance: IOHEXOL
     Indication: ARTHROGRAM
     Route: 065
     Dates: start: 20161019, end: 20161019

REACTIONS (4)
  - No adverse event [Recovered/Resolved]
  - Incorrect route of drug administration [Recovered/Resolved]
  - Product preparation error [Recovered/Resolved]
  - Drug ineffective [Recovered/Resolved]

NARRATIVE: CASE EVENT DATE: 20161019
